FAERS Safety Report 6155824-X (Version None)
Quarter: 2009Q2

REPORT INFORMATION
  Report Type: 
  Country: None (occurrence: None)
  Receive Date: 20090415
  Receipt Date: 20090403
  Transmission Date: 20091009
  Serious: Yes (Hospitalization)
  Sender: FDA-Public Use
  Company Number: GB-PFIZER INC-2009192965

PATIENT

DRUGS (2)
  1. DOXYCYCLINE HYCLATE [Suspect]
     Dosage: 100 MG, 1X/DAY
     Route: 048
     Dates: start: 20090203
  2. VENLAFAXINE [Concomitant]
     Indication: DEPRESSION
     Dosage: 75 MG, 1X/DAY
     Route: 048

REACTIONS (4)
  - DYSPNOEA [None]
  - PRURITUS [None]
  - RASH ERYTHEMATOUS [None]
  - WHEEZING [None]
